FAERS Safety Report 10901545 (Version 2)
Quarter: 2015Q2

REPORT INFORMATION
  Report Type: Spontaneous
  Country: US (occurrence: US)
  Receive Date: 20150310
  Receipt Date: 20150520
  Transmission Date: 20150821
  Serious: Yes (Hospitalization, Other)
  Sender: FDA-Public Use
  Company Number: US-PFIZER INC-2015081011

PATIENT
  Age: 50 Year
  Sex: Male
  Weight: 96 kg

DRUGS (22)
  1. LYRICA [Suspect]
     Active Substance: PREGABALIN
     Indication: NERVE INJURY
     Dosage: 300 MG, 2X/DAY
  2. LYRICA [Suspect]
     Active Substance: PREGABALIN
     Indication: NEURALGIA
     Dosage: 300 MG, 1X/DAY
  3. DICLOFEN [Concomitant]
     Active Substance: DICLOFENAC SODIUM
     Indication: SWELLING
     Dosage: 50 MG, 3X/DAY (1 TABLET UP TO TID)
  4. ACETAMINOPHEN W/HYDROCODONE [Concomitant]
     Active Substance: ACETAMINOPHEN\HYDROCODONE
     Indication: PAIN
     Dosage: (ACETAMINOPHEN-325 MG, HYDROCODONE- 10 MG) UNK, 3X/DAY
  5. PRISTIQ EXTENDED RELEASE [Suspect]
     Active Substance: DESVENLAFAXINE SUCCINATE
     Indication: AFFECTIVE DISORDER
     Dosage: 50 MG, 1X/DAY (1 TABLET EACH AM)
  6. KLONOPIN [Concomitant]
     Active Substance: CLONAZEPAM
     Dosage: 1 MG, 1 TABS EVERY 6-8 HOURS
  7. CLONAZEPAM. [Concomitant]
     Active Substance: CLONAZEPAM
     Indication: ANXIETY
     Dosage: 1 MG, 3X/DAY (1 TABLET EVERY 8 HOURS)
  8. DICLOFEN [Concomitant]
     Active Substance: DICLOFENAC SODIUM
     Indication: PAIN
  9. NORCO [Concomitant]
     Active Substance: ACETAMINOPHEN\HYDROCODONE BITARTRATE
     Indication: PAIN
     Dosage: (HYDROCODONE BITARTRATE-325 MG-PARACETAMOL-7.5 MG) 1 TABLET 3-4/DAY FOR THE NEXT 3 DAYS
  10. OMEPRAZOLE. [Concomitant]
     Active Substance: OMEPRAZOLE
     Dosage: 20 MG, 1X/DAY
  11. DICLOFEN [Concomitant]
     Active Substance: DICLOFENAC SODIUM
     Indication: INFLAMMATION
  12. CONCERTA [Concomitant]
     Active Substance: METHYLPHENIDATE HYDROCHLORIDE
     Indication: DISTURBANCE IN ATTENTION
     Dosage: 54 MG, 1X/DAY (54MG/24HR TABLET, EXTENDED RELEASE)
  13. DICLOFEN [Concomitant]
     Active Substance: DICLOFENAC SODIUM
     Indication: ARTHRITIS
  14. ALBUTEROL. [Concomitant]
     Active Substance: ALBUTEROL
     Indication: ASTHMA
     Dosage: 90 ?G, AS NEEDED (2 PUFFS Q 4-6 HOURS PRN)
     Route: 055
  15. LORTAB [Concomitant]
     Active Substance: ACETAMINOPHEN\HYDROCODONE BITARTRATE
     Indication: PAIN
     Dosage: 325 MG-10 MG, 1 TABLET 1/2 TO 1 TABLET (Q6-8 HOURS) MAX 4/DAY
  16. ADDERALL [Concomitant]
     Active Substance: AMPHETAMINE ASPARTATE\AMPHETAMINE SULFATE\DEXTROAMPHETAMINE SACCHARATE\DEXTROAMPHETAMINE SULFATE
     Indication: ATTENTION DEFICIT/HYPERACTIVITY DISORDER
     Dosage: 30 MG, 2X/DAY (1 TAB IN AM AND 1 TAB BY 2 PM)
  17. ALBUTEROL. [Concomitant]
     Active Substance: ALBUTEROL
     Indication: COUGH
  18. PRISTIQ EXTENDED RELEASE [Suspect]
     Active Substance: DESVENLAFAXINE SUCCINATE
     Indication: BIPOLAR DISORDER
     Dosage: UNK, 1X/DAY
     Dates: start: 201410
  19. ACETAMINOPHEN W/HYDROCODONE [Concomitant]
     Active Substance: ACETAMINOPHEN\HYDROCODONE
     Dosage: 1 TABLET 1/2 TO 1 TAB (Q-8 HOURS) MAX 4/DAY
  20. KLONOPIN [Concomitant]
     Active Substance: CLONAZEPAM
     Indication: ANXIETY
     Dosage: 1 MG, 3X/DAY
  21. PRISTIQ EXTENDED RELEASE [Suspect]
     Active Substance: DESVENLAFAXINE SUCCINATE
     Indication: ANXIETY
     Dosage: UNK, 1X/DAY
     Dates: end: 201410
  22. HYDROCODONE [Concomitant]
     Active Substance: HYDROCODONE
     Dosage: UNK

REACTIONS (19)
  - Arthritis bacterial [Unknown]
  - Musculoskeletal stiffness [Unknown]
  - Restlessness [Unknown]
  - Pain in extremity [Unknown]
  - Insomnia [Unknown]
  - Speech disorder [Unknown]
  - Arthralgia [Unknown]
  - Bone disorder [Unknown]
  - Back pain [Unknown]
  - Staphylococcal infection [Unknown]
  - Skin wrinkling [Unknown]
  - Pain [Unknown]
  - Scar [Recovering/Resolving]
  - Gait disturbance [Unknown]
  - Arthropathy [Unknown]
  - Pyrexia [Unknown]
  - Hypoaesthesia [Unknown]
  - Skin burning sensation [Unknown]
  - Swelling [Unknown]

NARRATIVE: CASE EVENT DATE: 2014
